FAERS Safety Report 4429196-2 (Version None)
Quarter: 2004Q3

REPORT INFORMATION
  Report Type: 
  Country: None (occurrence: None)
  Receive Date: 20040726
  Receipt Date: 20040518
  Transmission Date: 20050211
  Serious: No
  Sender: FDA-Public Use
  Company Number: USA040567803

PATIENT
  Age: 72 Year
  Sex: Female
  Weight: 55 kg

DRUGS (8)
  1. FORTEO [Suspect]
     Indication: OSTEOPOROSIS
     Dosage: 20 UG/ 1 DAY
     Dates: start: 20040421
  2. LOPRESSOR [Concomitant]
  3. THYROID MEDICATION [Concomitant]
  4. CITRACAL (CALCIUM CITRATE) [Concomitant]
  5. MAGNESIUM [Concomitant]
  6. DOXEPIN HCL [Concomitant]
  7. LORAZEPAM [Concomitant]
  8. PREMARIN H-C VAGINAL CREAM [Concomitant]

REACTIONS (2)
  - MUSCLE CRAMP [None]
  - OEDEMA PERIPHERAL [None]
